FAERS Safety Report 25853854 (Version 1)
Quarter: 2025Q3

REPORT INFORMATION
  Report Type: Spontaneous
  Country: US (occurrence: US)
  Receive Date: 20250926
  Receipt Date: 20250926
  Transmission Date: 20251021
  Serious: Yes (Hospitalization)
  Sender: LEXICON PHARMACEUTICALS
  Company Number: US-LEX-000813

PATIENT
  Age: 72 Year
  Sex: Female

DRUGS (8)
  1. INPEFA [Suspect]
     Active Substance: SOTAGLIFLOZIN
     Indication: Chronic left ventricular failure
     Route: 048
  2. GABAPENTIN [Concomitant]
     Active Substance: GABAPENTIN
  3. TRAMADOL [Concomitant]
     Active Substance: TRAMADOL
  4. PANTOPRAZOLE [Concomitant]
     Active Substance: PANTOPRAZOLE
  5. METOPROLOL TARTRATE [Concomitant]
     Active Substance: METOPROLOL TARTRATE
  6. ASPIRIN [Concomitant]
     Active Substance: ASPIRIN
  7. FERROUS GLUCONATE [Concomitant]
     Active Substance: FERROUS GLUCONATE
  8. BUMETANIDE [Concomitant]
     Active Substance: BUMETANIDE

REACTIONS (3)
  - Cerebrovascular accident [Unknown]
  - Pneumonia [Unknown]
  - Urinary tract infection [Unknown]
